FAERS Safety Report 20159785 (Version 2)
Quarter: 2022Q1

REPORT INFORMATION
  Report Type: Spontaneous
  Country: ES (occurrence: ES)
  Receive Date: 20211208
  Receipt Date: 20220225
  Transmission Date: 20220423
  Serious: Yes (Hospitalization, Other)
  Sender: FDA-Public Use
  Company Number: ES-SA-SAC20211119000429

PATIENT
  Age: 70 Year
  Sex: Male
  Weight: 81.3 kg

DRUGS (23)
  1. IRINOTECAN [Suspect]
     Active Substance: IRINOTECAN
     Indication: Rectal cancer metastatic
     Dosage: 280.5 MILLIGRAM (EVERY 2 WEEKS) (280.5 MG, QOW)
     Route: 042
     Dates: start: 20210914, end: 20210914
  2. IRINOTECAN [Suspect]
     Active Substance: IRINOTECAN
     Dosage: 280.5 MILLIGRAM (EVERY 2 WEEKS)
     Route: 042
     Dates: start: 20211116, end: 20211116
  3. AFLIBERCEPT [Suspect]
     Active Substance: AFLIBERCEPT
     Indication: Rectal cancer metastatic
     Dosage: 304 MILLIGRAM (EVERY 2 WEEKS) (304 MG, QOW )
     Route: 042
     Dates: start: 20210914, end: 20210914
  4. AFLIBERCEPT [Suspect]
     Active Substance: AFLIBERCEPT
     Dosage: 304 MILLIGRAM (EVERY 2 WEEKS) (304 MG, QOW )
     Route: 042
     Dates: start: 20211116, end: 20211116
  5. AFLIBERCEPT [Suspect]
     Active Substance: AFLIBERCEPT
     Dosage: UNK
     Route: 065
     Dates: end: 20211130
  6. AFLIBERCEPT [Suspect]
     Active Substance: AFLIBERCEPT
     Dosage: UNK
     Route: 065
     Dates: start: 20211214
  7. LEUCOVORIN [Suspect]
     Active Substance: LEUCOVORIN
     Indication: Rectal cancer metastatic
     Dosage: 748 MILLIGRAM (EVERY 2 WEEKS)(748 MG, QOW )
     Route: 042
     Dates: start: 20210914, end: 20210914
  8. LEUCOVORIN [Suspect]
     Active Substance: LEUCOVORIN
     Dosage: 748 MILLIGRAM (EVERY 2 WEEKS) (748 MG, QOW )
     Route: 042
     Dates: start: 20211116, end: 20211116
  9. FLUOROURACIL [Suspect]
     Active Substance: FLUOROURACIL
     Indication: Rectal cancer metastatic
     Dosage: 3740 MILLIGRAM (EVERY 2 WEEKS) (3740 MG, QOW )
     Route: 042
     Dates: start: 20210914, end: 20210914
  10. FLUOROURACIL [Suspect]
     Active Substance: FLUOROURACIL
     Dosage: 561 MILLIGRAM  (EVERY 2 WEEKS)
     Route: 040
     Dates: start: 20210914, end: 20210914
  11. FLUOROURACIL [Suspect]
     Active Substance: FLUOROURACIL
     Dosage: 3740 MILLIGRAM (EVERY 2 WEEKS) (3740 MG, QOW )
     Route: 042
     Dates: start: 20211116, end: 20211116
  12. FLUOROURACIL [Suspect]
     Active Substance: FLUOROURACIL
     Dosage: 561 MILLIGRAM  (EVERY 2 WEEKS) (561 MG, QOW )
     Route: 040
     Dates: start: 20211116, end: 20211116
  13. AMLODIPINE [Concomitant]
     Active Substance: AMLODIPINE BESYLATE
     Indication: Hypertension
     Dosage: 10 MILLIGRAM
     Route: 048
  14. ASPIRIN [Concomitant]
     Active Substance: ASPIRIN
     Indication: Bronchial disorder
     Dosage: 18 MICROGRAM
     Route: 055
  15. ASPIRIN [Concomitant]
     Active Substance: ASPIRIN
     Indication: Chronic obstructive pulmonary disease
  16. BISOPROLOL [Concomitant]
     Active Substance: BISOPROLOL
     Indication: Hypertension
     Dosage: 10 MILLIGRAM
     Route: 048
  17. ENOXAPARIN SODIUM [Concomitant]
     Active Substance: ENOXAPARIN SODIUM
     Indication: Thrombosis
     Dosage: 120 MILLIGRAM
     Route: 058
     Dates: end: 20211116
  18. FUROSEMIDE [Concomitant]
     Active Substance: FUROSEMIDE
     Indication: Hypertension
     Dosage: 40 MILLIGRAM
     Route: 048
  19. IRBESARTAN [Concomitant]
     Active Substance: IRBESARTAN
     Indication: Hypertension
     Dosage: 150 MILLIGRAM
     Route: 048
  20. LORMETAZEPAM [Concomitant]
     Active Substance: LORMETAZEPAM
     Indication: Insomnia
     Dosage: 2 MILLIGRAM
     Route: 048
  21. NALOXONE HYDROCHLORIDE\OXYCODONE HYDROCHLORIDE [Concomitant]
     Active Substance: NALOXONE HYDROCHLORIDE\OXYCODONE HYDROCHLORIDE
     Indication: Analgesic therapy
     Dosage: UNK, (TWO TIMES A DAY (5/2.50 MG, Q12H )
     Route: 048
  22. SERETIDE [Concomitant]
     Active Substance: FLUTICASONE PROPIONATE\SALMETEROL XINAFOATE
     Indication: Bronchial disorder
     Dosage: 2 DOSAGE FORM, TWO TIMES A DAY(2 DF, Q12H)
     Route: 055
  23. SERETIDE [Concomitant]
     Active Substance: FLUTICASONE PROPIONATE\SALMETEROL XINAFOATE
     Indication: Chronic obstructive pulmonary disease

REACTIONS (1)
  - Rectal haemorrhage [Recovered/Resolved]

NARRATIVE: CASE EVENT DATE: 20211116
